FAERS Safety Report 15564903 (Version 1)
Quarter: 2018Q4

REPORT INFORMATION
  Report Type: Spontaneous
  Country: IN (occurrence: IN)
  Receive Date: 20181030
  Receipt Date: 20181030
  Transmission Date: 20190205
  Serious: Yes (Death, Other)
  Sender: FDA-Public Use
  Company Number: IN-ROCHE-2205020

PATIENT
  Age: 81 Year
  Sex: Female

DRUGS (1)
  1. HERCEPTIN [Suspect]
     Active Substance: TRASTUZUMAB
     Indication: BREAST CANCER METASTATIC
     Dosage: 6 CYCLES
     Route: 065

REACTIONS (6)
  - Pneumonia [Fatal]
  - Respiratory acidosis [Fatal]
  - Hepatotoxicity [Unknown]
  - Respiratory distress [Fatal]
  - Metabolic acidosis [Fatal]
  - Cardiotoxicity [Unknown]
